FAERS Safety Report 8883885 (Version 1)
Quarter: 2012Q4

REPORT INFORMATION
  Report Type: 
  Country: US (occurrence: US)
  Receive Date: 20121102
  Receipt Date: 20121102
  Transmission Date: 20130627
  Serious: Yes (Other)
  Sender: FDA-Public Use
  Company Number: US-PFIZER INC-2012272298

PATIENT

DRUGS (1)
  1. LYRICA [Suspect]
     Dosage: one pill of 75mg once

REACTIONS (4)
  - Herpes zoster [Unknown]
  - Feeling abnormal [Unknown]
  - Balance disorder [Unknown]
  - Pruritus [Unknown]
